FAERS Safety Report 6685337-8 (Version None)
Quarter: 2010Q2

REPORT INFORMATION
  Report Type: 
  Country: None (occurrence: None)
  Receive Date: 20100416
  Receipt Date: 20090909
  Transmission Date: 20101027
  Serious: No
  Sender: FDA-Public Use
  Company Number: US-AMGEN-KDL359707

PATIENT
  Sex: Female
  Weight: 81.7 kg

DRUGS (14)
  1. SENSIPAR [Suspect]
     Indication: HYPERPARATHYROIDISM SECONDARY
     Route: 048
     Dates: start: 20090716
  2. UNSPECIFIED ANTIHYPERTENSIVE AGENT [Concomitant]
     Dates: start: 20090420
  3. ELAVIL [Concomitant]
     Route: 048
     Dates: start: 20081008
  4. HECTORAL [Concomitant]
     Dates: start: 20080803
  5. LIPITOR [Concomitant]
     Route: 048
     Dates: start: 20080514
  6. MULTI-VITAMINS [Concomitant]
     Route: 048
  7. NU-IRON [Concomitant]
     Route: 048
     Dates: start: 20080909
  8. PROPRANOLOL [Concomitant]
     Route: 048
     Dates: start: 20081215
  9. SEVELAMER [Concomitant]
     Dates: start: 20090130
  10. ZYLOPRIM [Concomitant]
     Route: 048
     Dates: start: 20090519
  11. ASPIRIN [Concomitant]
     Route: 048
     Dates: start: 20070226
  12. COLACE [Concomitant]
  13. GENTAMICIN [Concomitant]
     Route: 061
     Dates: start: 20090130
  14. NEPHRO-VITE [Concomitant]
     Route: 048
     Dates: start: 20080311

REACTIONS (3)
  - CONTUSION [None]
  - INCREASED TENDENCY TO BRUISE [None]
  - PERIORBITAL HAEMATOMA [None]
